FAERS Safety Report 20205440 (Version 1)
Quarter: 2021Q4

REPORT INFORMATION
  Report Type: Report from Study
  Country: US (occurrence: None)
  Receive Date: 20211220
  Receipt Date: 20211220
  Transmission Date: 20220303
  Serious: Yes (Hospitalization)
  Sender: FDA-Public Use
  Company Number: US-ROCHE-2908084

PATIENT
  Age: 74 Year
  Sex: Female
  Weight: 153 kg

DRUGS (17)
  1. ATEZOLIZUMAB [Suspect]
     Active Substance: ATEZOLIZUMAB
     Indication: Ovarian cancer
     Dosage: ON 28/JUN/2021, SHE RECEIVED THE MOST RECENT DOSE OF ATEZOLIZUMAB PRIOR TO SERIOUS ADVERSE EVENT ONS
     Route: 041
     Dates: start: 20210628, end: 20210628
  2. BEVACIZUMAB [Suspect]
     Active Substance: BEVACIZUMAB
     Indication: Ovarian cancer
     Dosage: ON 28/JUN/2021, SHE RECEIVED THE MOST RECENT DOSE OF BEVACIZUMAB PRIOR TO SERIOUS ADVERSE EVENT ONSE
     Route: 042
     Dates: start: 20210628, end: 20210628
  3. DOXORUBICIN HYDROCHLORIDE [Suspect]
     Active Substance: DOXORUBICIN HYDROCHLORIDE
     Indication: Ovarian cancer
     Dosage: ON 02/AUG/2021, SHE RECEIVED THE MOST RECENT DOSE OF LIPOSOMAL DOXORUBICIN PRIOR TO SERIOUS ADVERSE
     Route: 042
     Dates: start: 20210614
  4. ASPIRIN [Concomitant]
     Active Substance: ASPIRIN
  5. LIPITOR [Concomitant]
     Active Substance: ATORVASTATIN CALCIUM
  6. FIORICET [Concomitant]
     Active Substance: ACETAMINOPHEN\BUTALBITAL\CAFFEINE
  7. CYANOCOBALAMIN [Concomitant]
     Active Substance: CYANOCOBALAMIN
  8. VALIUM [Concomitant]
     Active Substance: DIAZEPAM
     Route: 065
  9. DOK [Concomitant]
     Active Substance: DOCUSATE SODIUM
  10. KEPPRA [Concomitant]
     Active Substance: LEVETIRACETAM
  11. MAGNESIUM HYDROXIDE [Concomitant]
     Active Substance: MAGNESIUM HYDROXIDE
  12. MELATONIN [Concomitant]
     Active Substance: MELATONIN
  13. TAPAZOLE [Concomitant]
     Active Substance: METHIMAZOLE
  14. DELTASONE [Concomitant]
     Active Substance: PREDNISONE
  15. INDERAL [Concomitant]
     Active Substance: PROPRANOLOL HYDROCHLORIDE
  16. CARMOL [UREA] [Concomitant]
  17. LIDOCAINE;PRILOCAINE [Concomitant]

REACTIONS (2)
  - Cerebrovascular accident [Recovered/Resolved]
  - Transient ischaemic attack [Recovering/Resolving]

NARRATIVE: CASE EVENT DATE: 20210712
